FAERS Safety Report 7579257-4 (Version None)
Quarter: 2011Q2

REPORT INFORMATION
  Report Type: 
  Country: None (occurrence: None)
  Receive Date: 20110628
  Receipt Date: 20110621
  Transmission Date: 20111010
  Serious: Yes (Hospitalization)
  Sender: FDA-Public Use
  Company Number: BR-MERCK-1106BRA00058

PATIENT
  Age: 89 Year
  Sex: Female

DRUGS (1)
  1. VYTORIN [Suspect]
     Route: 065

REACTIONS (1)
  - CARDIAC DISORDER [None]
